FAERS Safety Report 7919277-0 (Version None)
Quarter: 2011Q4

REPORT INFORMATION
  Report Type: 
  Country: None (occurrence: None)
  Receive Date: 20111115
  Receipt Date: 20111115
  Transmission Date: 20120403
  Serious: No
  Sender: FDA-Public Use
  Company Number: None

PATIENT
  Sex: Male

DRUGS (1)
  1. ZELBORAF [Suspect]
     Indication: SKIN CANCER
     Dosage: 960MG BID PO 10-20-11 STARTED THEM DOSE CHANGED 11-10-11
     Route: 048

REACTIONS (2)
  - ARTHRALGIA [None]
  - FATIGUE [None]
